FAERS Safety Report 9252854 (Version 1)
Quarter: 2013Q1

REPORT INFORMATION
  Report Type: Spontaneous
  Country: US (occurrence: None)
  Receive Date: 20130305
  Receipt Date: 20130305
  Transmission Date: 20140127
  Serious: Yes (Other)
  Sender: FDA-Public Use
  Company Number: 163-21880-12082188

PATIENT
  Age: 58 Year
  Sex: Female
  Weight: 70.76 kg

DRUGS (9)
  1. REVLIMID [Suspect]
     Indication: PLASMA CELL MYELOMA
     Dosage: 1 IN 1 D
     Route: 048
     Dates: start: 20100522
  2. ASPIRIN (ACETYLSALICYLIC ACID) [Concomitant]
  3. COLACE (DOCUSATE SODIUM) [Concomitant]
  4. IRON (IRON) [Concomitant]
  5. MORPHINE SULFATE (MORPHINE SULFATE) INJECTION [Concomitant]
  6. VITAMINS [Concomitant]
  7. SENNAKOT (SENNA FRUIT) [Concomitant]
  8. TYLENOL (PARACETAMOL) [Concomitant]
  9. VITAMIN B COMPLEX (B-KOMPLEX ^LECIVA^) [Concomitant]

REACTIONS (2)
  - Neuropathy peripheral [None]
  - Pain in extremity [None]
